FAERS Safety Report 9805199 (Version 1)
Quarter: 2014Q1

REPORT INFORMATION
  Report Type: Spontaneous
  Country: US (occurrence: US)
  Receive Date: 20140109
  Receipt Date: 20140109
  Transmission Date: 20141002
  Serious: No
  Sender: FDA-Public Use
  Company Number: US-009507513-1401USA002264

PATIENT
  Age: 77 Year
  Sex: Female

DRUGS (6)
  1. DULERA [Suspect]
     Indication: CHRONIC OBSTRUCTIVE PULMONARY DISEASE
     Dosage: 1 PUFF, BID
     Route: 055
     Dates: start: 20131020, end: 201311
  2. DULERA [Suspect]
     Indication: ASTHMA
  3. THEOPHYLLINE [Concomitant]
  4. SINGULAIR [Concomitant]
  5. ATROVENT [Concomitant]
  6. ADVAIR [Concomitant]

REACTIONS (2)
  - Dyspnoea [Recovering/Resolving]
  - Product quality issue [Unknown]
